FAERS Safety Report 6946164-7 (Version None)
Quarter: 2010Q3

REPORT INFORMATION
  Report Type: 
  Country: None (occurrence: None)
  Receive Date: 20100827
  Receipt Date: 20100816
  Transmission Date: 20110219
  Serious: Yes (Hospitalization)
  Sender: FDA-Public Use
  Company Number: PHHY2010ES54279

PATIENT
  Age: 46 Year
  Sex: Male

DRUGS (5)
  1. CERTICAN [Suspect]
     Indication: RENAL TRANSPLANT
     Dosage: 4 MG, BID
     Route: 048
     Dates: start: 20091111, end: 20091204
  2. ARANESP [Concomitant]
     Indication: ANAEMIA
  3. CELLCEPT [Concomitant]
     Indication: RENAL TRANSPLANT
     Dosage: 1 G, BID
     Dates: start: 20090907
  4. FERRO SANOL [Concomitant]
     Indication: ANAEMIA
     Dosage: UNK
     Dates: start: 20091127, end: 20091203
  5. PROGRAF [Concomitant]
     Indication: RENAL TRANSPLANT
     Dosage: 2 MG, BID
     Dates: start: 20090907, end: 20091110

REACTIONS (5)
  - ANAPHYLACTIC REACTION [None]
  - DRUG ERUPTION [None]
  - EOSINOPHILIA [None]
  - HEPATITIS [None]
  - TUBULOINTERSTITIAL NEPHRITIS [None]
